FAERS Safety Report 6130241-7 (Version None)
Quarter: 2009Q1

REPORT INFORMATION
  Report Type: 
  Country: None (occurrence: None)
  Receive Date: 20090324
  Receipt Date: 20090312
  Transmission Date: 20090719
  Serious: Yes (Hospitalization, Other)
  Sender: FDA-Public Use
  Company Number: US-ELI_LILLY_AND_COMPANY-US200903003357

PATIENT
  Sex: Female

DRUGS (3)
  1. FORTEO [Suspect]
     Indication: OSTEOPOROSIS
     Dosage: 20 UG, DAILY (1/D)
     Dates: start: 20081212, end: 20081224
  2. FORTEO [Suspect]
     Dosage: 20 UG, DAILY (1/D)
  3. PROPRANOLOL [Concomitant]
     Indication: BLOOD PRESSURE
     Dosage: 60 MG, 2/D

REACTIONS (3)
  - ABDOMINAL PAIN UPPER [None]
  - HYPERTENSION [None]
  - PANCREATITIS [None]
